FAERS Safety Report 15905897 (Version 1)
Quarter: 2019Q1

REPORT INFORMATION
  Report Type: Spontaneous
  Country: US (occurrence: US)
  Receive Date: 20190202
  Receipt Date: 20190202
  Transmission Date: 20190417
  Serious: No
  Sender: FDA-Public Use
  Company Number: None

PATIENT
  Age: 33 Year
  Sex: Female
  Weight: 56.25 kg

DRUGS (4)
  1. MULTIVITAMIN, [Concomitant]
  2. IRON SUPPLEMENT [Concomitant]
     Active Substance: IRON
  3. DEXTROAMP-AMPHETAMINE 15MG [Concomitant]
     Active Substance: AMPHETAMINE\DEXTROAMPHETAMINE
     Indication: ATTENTION DEFICIT/HYPERACTIVITY DISORDER
     Dosage: ?          QUANTITY:60 TABLET(S);?
     Route: 048
     Dates: start: 20190117, end: 20190201
  4. MAGNESIUM [Concomitant]
     Active Substance: MAGNESIUM

REACTIONS (7)
  - Product substitution issue [None]
  - Somnolence [None]
  - Drug effect decreased [None]
  - Headache [None]
  - Pollakiuria [None]
  - Irritability [None]
  - Disturbance in attention [None]

NARRATIVE: CASE EVENT DATE: 20190201
